FAERS Safety Report 23384090 (Version 1)
Quarter: 2024Q1

REPORT INFORMATION
  Report Type: Spontaneous
  Country: US (occurrence: None)
  Receive Date: 20240109
  Receipt Date: 20240109
  Transmission Date: 20240409
  Serious: Yes (Other)
  Sender: FDA-Public Use
  Company Number: None

PATIENT
  Sex: Female
  Weight: 54 kg

DRUGS (6)
  1. MONTELUKAST [Suspect]
     Active Substance: MONTELUKAST SODIUM
     Indication: Asthma
     Dosage: OTHER QUANTITY : 1 TABLET(S);?FREQUENCY : AT BEDTIME;?
     Route: 048
     Dates: start: 20160114
  2. ALBUTEROL [Concomitant]
     Active Substance: ALBUTEROL
  3. GENERIC ADVAIR [Concomitant]
  4. WOMEN^S MULTIIVITAMIN [Concomitant]
  5. XYZAL [Concomitant]
     Active Substance: LEVOCETIRIZINE DIHYDROCHLORIDE
  6. ZYRTEC [Concomitant]
     Active Substance: CETIRIZINE HYDROCHLORIDE

REACTIONS (6)
  - Feeling abnormal [None]
  - Anxiety [None]
  - Therapy cessation [None]
  - Depression [None]
  - Premenstrual syndrome [None]
  - Cerebral disorder [None]

NARRATIVE: CASE EVENT DATE: 20221012
